FAERS Safety Report 5201057-0 (Version None)
Quarter: 2007Q1

REPORT INFORMATION
  Report Type: 
  Country: None (occurrence: None)
  Receive Date: 20070103
  Receipt Date: 20061221
  Transmission Date: 20070707
  Serious: Yes (Other)
  Sender: FDA-Public Use
  Company Number: GXKR2006GB08457

PATIENT
  Age: 51 Year
  Sex: Male

DRUGS (5)
  1. CO-AMOXICLAV  (NGX) (AMOXICILLIN, CLAVULANATE) [Suspect]
     Indication: DRUG USE FOR UNKNOWN INDICATION
     Dosage: 625 MG, TID, ORAL
     Route: 048
     Dates: start: 20061020
  2. ALLOPURINOL [Concomitant]
  3. ATENOLOL [Concomitant]
  4. INDOMETHACIN [Concomitant]
  5. RAMIPRIL [Concomitant]

REACTIONS (1)
  - ARTHRALGIA [None]
